FAERS Safety Report 8211355-4 (Version None)
Quarter: 2012Q1

REPORT INFORMATION
  Report Type: 
  Country: None (occurrence: None)
  Receive Date: 20120315
  Receipt Date: 20120312
  Transmission Date: 20120608
  Serious: Yes (Other)
  Sender: FDA-Public Use
  Company Number: DE-SANOFI-AVENTIS-2012SA016330

PATIENT
  Age: 71 Year
  Sex: Male

DRUGS (5)
  1. MULTAQ [Suspect]
     Route: 048
     Dates: start: 20120101
  2. HYDROCHLOROTHIAZIDE [Concomitant]
  3. BISOPROLOL FUMARATE [Concomitant]
  4. ANTIHYPERTENSIVES [Concomitant]
  5. CALCIUM CHANNEL BLOCKERS [Concomitant]

REACTIONS (2)
  - CONDITION AGGRAVATED [None]
  - ELECTROCARDIOGRAM PR SHORTENED [None]
